FAERS Safety Report 21935384 (Version 2)
Quarter: 2023Q1

REPORT INFORMATION
  Report Type: Spontaneous
  Country: CN (occurrence: CN)
  Receive Date: 20230201
  Receipt Date: 20230302
  Transmission Date: 20230417
  Serious: Yes (Other)
  Sender: FDA-Public Use
  Company Number: CN-TAKEDA-2023TUS010204

PATIENT
  Age: 34 Year
  Sex: Female
  Weight: 67 kg

DRUGS (1)
  1. ALBUMIN HUMAN [Suspect]
     Active Substance: ALBUMIN HUMAN
     Indication: Nutritional supplementation
     Dosage: 10 GRAM, QD
     Route: 041
     Dates: start: 20230113, end: 20230113

REACTIONS (6)
  - Body temperature increased [Recovering/Resolving]
  - Heart rate increased [Recovering/Resolving]
  - Tachypnoea [Recovering/Resolving]
  - Oxygen saturation decreased [Recovering/Resolving]
  - Chills [Recovering/Resolving]
  - Pruritus [Recovering/Resolving]

NARRATIVE: CASE EVENT DATE: 20230113
